FAERS Safety Report 7344557-X (Version None)
Quarter: 2011Q1

REPORT INFORMATION
  Report Type: 
  Country: None (occurrence: None)
  Receive Date: 20110310
  Receipt Date: 20110303
  Transmission Date: 20110831
  Serious: Yes (Other)
  Sender: FDA-Public Use
  Company Number: US-ALEXION-A201100057

PATIENT
  Sex: Female

DRUGS (13)
  1. SOLIRIS [Suspect]
     Dosage: 900 MG, QW
     Route: 042
     Dates: start: 20110118
  2. COUMADIN [Concomitant]
     Dosage: UNK
     Dates: end: 20101201
  3. ORTHO EVRA [Concomitant]
     Dosage: QD
     Route: 062
     Dates: end: 20110301
  4. ATIVAN [Concomitant]
     Dosage: 1 MG, TID PRN
     Route: 048
  5. LOVENOX [Concomitant]
     Dosage: QD
     Route: 058
     Dates: start: 20101201
  6. MECLIZINE HYDROCHLORIDE [Concomitant]
     Dosage: 25 MG, QD
     Route: 048
  7. COMPAZINE [Concomitant]
     Dosage: 10 MG, TID
     Route: 048
  8. SOLIRIS [Suspect]
     Indication: PAROXYSMAL NOCTURNAL HAEMOGLOBINURIA
     Dosage: 600 MG, QW
     Route: 042
     Dates: start: 20100720, end: 20100810
  9. SOLIRIS [Suspect]
     Dosage: 900 MG, Q2W
     Route: 042
     Dates: start: 20100817
  10. PROTONIX [Concomitant]
     Dosage: 40 MG, QD
     Route: 048
  11. AMBIEN [Concomitant]
     Dosage: 10 MG, QD
     Route: 048
  12. PROCHLORPERAZINE MALEATE [Concomitant]
     Dosage: 10 MG, TID PRN
     Route: 048
  13. DEPO-PROVERA [Concomitant]
     Dosage: UNK
     Dates: start: 20110301

REACTIONS (1)
  - HAEMOLYTIC ANAEMIA [None]
